FAERS Safety Report 8071355-4 (Version None)
Quarter: 2012Q1

REPORT INFORMATION
  Report Type: 
  Country: None (occurrence: None)
  Receive Date: 20120125
  Receipt Date: 20120118
  Transmission Date: 20120608
  Serious: Yes (Other)
  Sender: FDA-Public Use
  Company Number: BR-PFIZER INC-2012015081

PATIENT
  Age: 71 Year
  Sex: Male
  Weight: 100 kg

DRUGS (5)
  1. ATACAND [Concomitant]
     Indication: HYPERTENSION
     Dosage: 16 MG, 1X/DAY (1 TABLET DAILY)
     Dates: start: 20070101
  2. METAMUCIL-2 [Concomitant]
     Indication: CONSTIPATION
     Dosage: UNK
  3. ASPIRIN [Concomitant]
     Indication: ANTICOAGULANT THERAPY
     Dosage: 2 TABLETS DAILY (UNSPECIFIED DOSAGE)
  4. VIAGRA [Suspect]
     Indication: ERECTILE DYSFUNCTION
     Dosage: 50 MG, AS NEEDED (1 TABLET BEFORE SEXUAL INTERCOURSE)
     Route: 048
  5. AMLODIPINE BESYLATE [Concomitant]
     Indication: HYPERTENSION
     Dosage: 1 TABLET DAILY (UNSPECIFIED DOSAGE)
     Dates: start: 20070101

REACTIONS (2)
  - PROSTATIC OPERATION [None]
  - DRUG INEFFECTIVE [None]
